FAERS Safety Report 9592810 (Version 1)
Quarter: 2013Q4

REPORT INFORMATION
  Report Type: Spontaneous
  Country: GB (occurrence: GB)
  Receive Date: 20131004
  Receipt Date: 20131004
  Transmission Date: 20140711
  Serious: Yes (Hospitalization)
  Sender: FDA-Public Use
  Company Number: GB-JNJFOC-20131000248

PATIENT
  Age: 74 Year
  Sex: Male
  Weight: 113 kg

DRUGS (14)
  1. XARELTO [Suspect]
     Indication: CEREBROVASCULAR ACCIDENT PROPHYLAXIS
     Route: 048
     Dates: start: 20130729, end: 20130827
  2. XARELTO [Suspect]
     Indication: ATRIAL FIBRILLATION
     Route: 048
     Dates: start: 20130729, end: 20130827
  3. CARBOCISTEINE [Concomitant]
     Route: 065
  4. PARACETAMOL [Concomitant]
     Route: 065
  5. LANSOPRAZOLE [Concomitant]
     Route: 065
  6. LISINOPRIL [Concomitant]
     Route: 065
  7. MOMETASONE [Concomitant]
     Route: 065
  8. SALBUTAMOL [Concomitant]
     Route: 065
  9. SERETIDE [Concomitant]
     Route: 065
  10. TIOTROPIUM [Concomitant]
     Route: 065
  11. DOXAZOSIN [Concomitant]
     Route: 065
  12. CETIRIZINE [Concomitant]
     Route: 065
  13. BISOPROLOL [Concomitant]
     Route: 065
  14. METFORMIN [Concomitant]
     Route: 065

REACTIONS (3)
  - Pulmonary oedema [Recovered/Resolved with Sequelae]
  - Dyspnoea [Recovering/Resolving]
  - Dizziness [Recovered/Resolved]
